FAERS Safety Report 9786684 (Version 4)
Quarter: 2014Q2

REPORT INFORMATION
  Report Type: Spontaneous
  Country: NZ (occurrence: NZ)
  Receive Date: 20131227
  Receipt Date: 20140501
  Transmission Date: 20141212
  Serious: Yes (Hospitalization, Other)
  Sender: FDA-Public Use
  Company Number: NZ-ABBVIE-13P-118-1181793-00

PATIENT
  Age: 28 Year
  Sex: Female

DRUGS (5)
  1. HUMIRA [Suspect]
     Indication: CROHN^S DISEASE
     Route: 058
     Dates: start: 201008
  2. HUMIRA [Suspect]
  3. PENTASA [Concomitant]
     Indication: CROHN^S DISEASE
     Route: 048
  4. CALCIUM [Concomitant]
     Indication: PRODUCT USED FOR UNKNOWN INDICATION
  5. ANTIDEPRESSANTS [Concomitant]
     Indication: PRODUCT USED FOR UNKNOWN INDICATION

REACTIONS (15)
  - Precipitate labour [Unknown]
  - Episiotomy [Unknown]
  - Hypertension [Unknown]
  - Anal haemorrhage [Unknown]
  - Crohn^s disease [Recovering/Resolving]
  - Malaise [Unknown]
  - Unevaluable event [Not Recovered/Not Resolved]
  - Gastrointestinal infection [Unknown]
  - Anal fissure [Unknown]
  - Ear infection [Recovered/Resolved]
  - Pain [Unknown]
  - Vomiting [Recovering/Resolving]
  - Diarrhoea haemorrhagic [Recovering/Resolving]
  - Abdominal pain upper [Recovered/Resolved]
  - Diarrhoea [Recovered/Resolved]
